FAERS Safety Report 6399537-8 (Version None)
Quarter: 2009Q4

REPORT INFORMATION
  Report Type: 
  Country: None (occurrence: None)
  Receive Date: 20091014
  Receipt Date: 20091006
  Transmission Date: 20100525
  Serious: Yes (Other)
  Sender: FDA-Public Use
  Company Number: AU-JNJFOC-20091001372

PATIENT
  Sex: Male

DRUGS (3)
  1. RISPERDAL CONSTA [Suspect]
     Indication: DRUG USE FOR UNKNOWN INDICATION
     Route: 030
  2. RISPERDAL [Suspect]
     Dosage: IN THE NIGHT
     Route: 065
  3. RISPERDAL [Suspect]
     Indication: SCHIZOPHRENIA
     Dosage: 3 MG IN THE MORNING AND 3 MG AT NIGHT
     Route: 065

REACTIONS (3)
  - DIABETES MELLITUS [None]
  - INCORRECT DOSE ADMINISTERED [None]
  - WEIGHT INCREASED [None]
